FAERS Safety Report 16664027 (Version 5)
Quarter: 2020Q4

REPORT INFORMATION
  Report Type: Report from Study
  Country: US (occurrence: US)
  Receive Date: 20190802
  Receipt Date: 20201207
  Transmission Date: 20210113
  Serious: Yes (Life-Threatening, Hospitalization, Other)
  Sender: FDA-Public Use
  Company Number: US-TESAROUBC-2019-TSO02751-US

PATIENT
  Age: 76 Year
  Sex: Female
  Weight: 90.8 kg

DRUGS (36)
  1. GASTROGRAFIN [Concomitant]
     Active Substance: DIATRIZOATE MEGLUMINE\DIATRIZOATE SODIUM
     Indication: SMALL INTESTINAL OBSTRUCTION
     Dosage: 240 ML, SINGLE
     Route: 048
     Dates: start: 20190627, end: 20190627
  2. LORAZEPAM. [Concomitant]
     Active Substance: LORAZEPAM
     Indication: GASTROINTESTINAL TUBE INSERTION
     Dosage: 1 MG, SINGLE
     Route: 042
     Dates: start: 20190626, end: 20190626
  3. BACTRIM DS [Concomitant]
     Active Substance: SULFAMETHOXAZOLE\TRIMETHOPRIM
     Indication: URINARY TRACT INFECTION
     Dosage: 800/160 MG, BID
     Route: 048
     Dates: start: 20190711, end: 20190718
  4. ZARXIO [Concomitant]
     Active Substance: FILGRASTIM-SNDZ
     Dosage: 480 UG, QD
     Route: 058
     Dates: start: 20190724, end: 20190726
  5. PACLITAXEL. [Suspect]
     Active Substance: PACLITAXEL
     Dosage: 140 MG
     Route: 042
     Dates: start: 20190524, end: 20190524
  6. BEVACIZUMAB. [Suspect]
     Active Substance: BEVACIZUMAB
     Indication: OVARIAN CANCER
     Dosage: UNK
     Route: 042
  7. BEVACIZUMAB. [Suspect]
     Active Substance: BEVACIZUMAB
     Dosage: 1300 MG/KG
     Route: 042
     Dates: start: 20190524, end: 20190524
  8. CALCIUM CARBONATE. [Concomitant]
     Active Substance: CALCIUM CARBONATE
     Indication: DYSPEPSIA
     Dosage: 500 MG, PRN
     Route: 048
     Dates: start: 20190628
  9. MAGNESIUM SULFATE. [Concomitant]
     Active Substance: MAGNESIUM SULFATE
     Indication: HYPOMAGNESAEMIA
     Dosage: 2 G, SINGLE
     Route: 042
     Dates: start: 20190627, end: 20190627
  10. OXYCODONE [Concomitant]
     Active Substance: OXYCODONE
     Indication: ABDOMINAL PAIN
     Dosage: 2.5-10 MG, PRN
     Route: 048
     Dates: start: 20190626, end: 20190630
  11. PREDNISONE (ORAL) [Concomitant]
     Active Substance: PREDNISONE
     Dosage: 20 MG, QD
     Route: 048
     Dates: start: 20190710, end: 20190714
  12. PREDNISONE (ORAL) [Concomitant]
     Active Substance: PREDNISONE
     Dosage: 10 MG, QD
     Route: 048
     Dates: start: 20190715, end: 20190719
  13. LISINOPRIL. [Concomitant]
     Active Substance: LISINOPRIL
     Indication: HYPERTENSION
     Dosage: 20 MG, UNK
     Route: 048
     Dates: start: 20190712
  14. PLACEBO [Suspect]
     Active Substance: UNSPECIFIED INGREDIENT
     Indication: OVARIAN CANCER
     Dosage: 500 MG
     Dates: start: 20190301, end: 20190301
  15. PLACEBO [Suspect]
     Active Substance: UNSPECIFIED INGREDIENT
     Dosage: UNK
     Dates: start: 20190614, end: 20190614
  16. DOCETAXEL. [Concomitant]
     Active Substance: DOCETAXEL
  17. KETOROLAC [Concomitant]
     Active Substance: KETOROLAC TROMETHAMINE
     Indication: ABDOMINAL PAIN
     Dosage: 15 MG, PRN
     Route: 042
     Dates: start: 20190627, end: 20190630
  18. PROTONIX (OMEPRAZOLE) [Concomitant]
     Active Substance: OMEPRAZOLE
     Indication: GASTROOESOPHAGEAL REFLUX DISEASE
     Dosage: 40 MG, QD
     Route: 042
     Dates: start: 20190627, end: 20190630
  19. NORMAL SALINE [Concomitant]
     Active Substance: SODIUM CHLORIDE
     Indication: HYPONATRAEMIA
     Dosage: 1000 ML, PRN
     Route: 042
     Dates: start: 20190711
  20. CISPLATIN. [Concomitant]
     Active Substance: CISPLATIN
  21. DOCUSATE + SENNA [Concomitant]
     Active Substance: DOCUSATE SODIUM\SENNA LEAF
     Indication: CONSTIPATION
     Dosage: 8.6/50 MG, BID
     Route: 048
     Dates: start: 20190626, end: 20190630
  22. PLACEBO [Suspect]
     Active Substance: UNSPECIFIED INGREDIENT
     Dosage: 500 MG
     Dates: start: 20190524, end: 20190524
  23. CARBOPLATIN. [Suspect]
     Active Substance: CARBOPLATIN
     Indication: OVARIAN CANCER
     Dosage: 5 AUC
     Route: 042
     Dates: start: 20190208, end: 20190208
  24. NIRAPARIB [Suspect]
     Active Substance: NIRAPARIB
     Indication: OVARIAN CANCER
     Dosage: UNK
     Dates: start: 20190705, end: 20190718
  25. ENOXAPARIN [Concomitant]
     Active Substance: ENOXAPARIN
     Indication: THROMBOSIS PROPHYLAXIS
     Dosage: 40 MG, QD
     Route: 058
     Dates: start: 20190627, end: 20190630
  26. FENTANYL. [Concomitant]
     Active Substance: FENTANYL
     Indication: GASTROINTESTINAL TUBE INSERTION
     Dosage: 50 ?G, SINGLE
     Route: 042
     Dates: start: 20190626, end: 20190626
  27. ONDANSETRON [Concomitant]
     Active Substance: ONDANSETRON
     Indication: NAUSEA
     Dosage: 4 MG, PRN
     Route: 042
     Dates: start: 20190626, end: 20190630
  28. PROCHLORPERAZINE. [Concomitant]
     Active Substance: PROCHLORPERAZINE
     Indication: NAUSEA
     Dosage: 5 MG, PRN
     Route: 042
     Dates: start: 20190626, end: 20190630
  29. PREDNISONE (ORAL) [Concomitant]
     Active Substance: PREDNISONE
     Dosage: 5 MG, QD
     Route: 048
     Dates: start: 20190720, end: 20190724
  30. ZARXIO [Concomitant]
     Active Substance: FILGRASTIM-SNDZ
     Indication: NEUTROPENIA
     Dosage: 300 UG, SINGLE
     Route: 058
     Dates: start: 20190723, end: 20190723
  31. NIRAPARIB [Suspect]
     Active Substance: NIRAPARIB
     Dosage: 300 MG
     Dates: end: 20190719
  32. CARBOPLATIN. [Suspect]
     Active Substance: CARBOPLATIN
     Dosage: 360 AUC
     Route: 042
     Dates: start: 20190524, end: 20190524
  33. PACLITAXEL. [Suspect]
     Active Substance: PACLITAXEL
     Indication: OVARIAN CANCER
     Dosage: 330 MG
     Route: 042
     Dates: start: 20190208, end: 20190208
  34. POTASSIUM [Concomitant]
     Active Substance: POTASSIUM
     Indication: INTESTINAL OBSTRUCTION
     Dosage: 75 ML, Z
     Route: 042
     Dates: start: 20190626, end: 20190630
  35. PHENOL EZ [Concomitant]
     Indication: GASTROINTESTINAL TUBE INSERTION
     Dosage: 2 UNK, PRN
     Route: 048
     Dates: start: 20190627, end: 20190630
  36. PREDNISONE (ORAL) [Concomitant]
     Active Substance: PREDNISONE
     Indication: RASH MACULO-PAPULAR
     Dosage: 30 MG, QD
     Route: 048
     Dates: start: 20190705, end: 20190709

REACTIONS (1)
  - Pancytopenia [Recovered/Resolved]

NARRATIVE: CASE EVENT DATE: 20190726
